FAERS Safety Report 7205755-9 (Version None)
Quarter: 2010Q4

REPORT INFORMATION
  Report Type: 
  Country: None (occurrence: None)
  Receive Date: 20101231
  Receipt Date: 20101229
  Transmission Date: 20110411
  Serious: Yes (Hospitalization)
  Sender: FDA-Public Use
  Company Number: US-BRISTOL-MYERS SQUIBB COMPANY-15465032

PATIENT
  Sex: Male

DRUGS (1)
  1. ERBITUX [Suspect]
     Dates: start: 20101228

REACTIONS (3)
  - CONFUSIONAL STATE [None]
  - HYPERSENSITIVITY [None]
  - MENTAL STATUS CHANGES [None]
